FAERS Safety Report 6282599-6 (Version None)
Quarter: 2009Q3

REPORT INFORMATION
  Report Type: 
  Country: None (occurrence: None)
  Receive Date: 20090724
  Receipt Date: 20090713
  Transmission Date: 20100115
  Serious: Yes (Hospitalization, Other)
  Sender: FDA-Public Use
  Company Number: PHHY2009JP23373

PATIENT
  Sex: Female

DRUGS (9)
  1. ICL670A ICL+DISTAB [Suspect]
     Indication: MYELODYSPLASTIC SYNDROME
     Dosage: 750 MG /DAY
     Route: 048
     Dates: start: 20081022, end: 20090528
  2. ICL670A ICL+DISTAB [Suspect]
     Indication: IRON OVERLOAD
  3. AUGMENTIN [Suspect]
     Dosage: UNK
     Route: 048
     Dates: start: 20090501, end: 20090507
  4. MITIGLINIDE [Concomitant]
     Dosage: 15 MG, UNK
     Route: 048
     Dates: start: 20081022, end: 20090403
  5. MIGLITOL [Concomitant]
     Dosage: 150 MG, UNK
     Route: 048
     Dates: start: 20081022, end: 20090403
  6. METFORMIN HCL [Concomitant]
     Dosage: 750 MG, UNK
     Dates: start: 20081022, end: 20090403
  7. LANTUS [Concomitant]
     Dosage: 12 DF, UNK
     Route: 058
     Dates: start: 20081022
  8. PANTOSIN [Concomitant]
     Dosage: 1.5 G, UNK
     Route: 048
     Dates: start: 20090423
  9. MAGNESIUM OXIDE [Concomitant]
     Dosage: 1.5 G, UNK
     Route: 048
     Dates: start: 20090423

REACTIONS (3)
  - AGRANULOCYTOSIS [None]
  - BLOOD GLUCOSE ABNORMAL [None]
  - CONDITION AGGRAVATED [None]
